FAERS Safety Report 9467865 (Version 3)
Quarter: 2014Q1

REPORT INFORMATION
  Report Type: Report from Study
  Country: DE (occurrence: DE)
  Receive Date: 20130821
  Receipt Date: 20140108
  Transmission Date: 20141002
  Serious: Yes (Death)
  Sender: FDA-Public Use
  Company Number: DE-ROCHE-1264097

PATIENT
  Age: 69 Year
  Sex: Male

DRUGS (6)
  1. BEVACIZUMAB [Suspect]
     Indication: LUNG NEOPLASM MALIGNANT
     Route: 042
     Dates: start: 20130418, end: 20130801
  2. CARBOPLATIN [Suspect]
     Indication: LUNG NEOPLASM MALIGNANT
     Dosage: AUC 5
     Route: 042
     Dates: start: 20130418, end: 20130801
  3. DELIX (GERMANY) [Concomitant]
     Indication: HYPERTENSION
     Route: 048
     Dates: start: 2013
  4. FORTECORTIN (GERMANY) [Concomitant]
     Route: 048
     Dates: start: 2013
  5. GRANISETRON [Concomitant]
     Indication: NAUSEA
     Route: 048
     Dates: start: 20130418
  6. NEULASTA [Concomitant]
     Indication: PROPHYLAXIS
     Route: 030
     Dates: start: 2013

REACTIONS (1)
  - General physical health deterioration [Fatal]
